FAERS Safety Report 18387261 (Version 1)
Quarter: 2020Q4

REPORT INFORMATION
  Report Type: Spontaneous
  Country: US (occurrence: US)
  Receive Date: 20201014
  Receipt Date: 20201014
  Transmission Date: 20210114
  Serious: Yes (Hospitalization)
  Sender: FDA-Public Use
  Company Number: None

PATIENT
  Age: 64 Year
  Sex: Male

DRUGS (7)
  1. RAPAFLO [Concomitant]
     Active Substance: SILODOSIN
  2. BRAFTOVI [Suspect]
     Active Substance: ENCORAFENIB
     Indication: NEOPLASM MALIGNANT
     Route: 048
     Dates: start: 20190923
  3. CIALIS [Concomitant]
     Active Substance: TADALAFIL
  4. MEKTOVI [Suspect]
     Active Substance: BINIMETINIB
     Route: 048
  5. MOVANTIK [Concomitant]
     Active Substance: NALOXEGOL OXALATE
  6. PREDNISONE. [Concomitant]
     Active Substance: PREDNISONE
  7. MEMANTINE. [Concomitant]
     Active Substance: MEMANTINE

REACTIONS (3)
  - Cerebral haemorrhage [None]
  - Hemiplegia [None]
  - Therapy interrupted [None]

NARRATIVE: CASE EVENT DATE: 20201012
